FAERS Safety Report 8290386 (Version 4)
Quarter: 2013Q2

REPORT INFORMATION
  Report Type: Spontaneous
  Country: US (occurrence: None)
  Receive Date: 20111122
  Receipt Date: 20130107
  Transmission Date: 20140414
  Serious: No
  Sender: FDA-Public Use
  Company Number: PHEH2011US01444

PATIENT
  Age: 41 Year
  Sex: Female
  Weight: 82.5 kg

DRUGS (1)
  1. GILENYA [Suspect]
     Indication: MULTIPLE SCLEROSIS
     Route: 048
     Dates: start: 20110810

REACTIONS (7)
  - DYSGEUSIA [None]
  - Nasal congestion [None]
  - Fatigue [None]
  - Pyrexia [None]
  - Influenza [None]
  - Cough [None]
  - Heart rate increased [None]
